FAERS Safety Report 24892685 (Version 1)
Quarter: 2025Q1

REPORT INFORMATION
  Report Type: Report from Study
  Country: US (occurrence: US)
  Receive Date: 20250128
  Receipt Date: 20250128
  Transmission Date: 20250408
  Serious: Yes (Hospitalization)
  Sender: JOHNSON AND JOHNSON
  Company Number: US-JNJFOC-20250164439

PATIENT
  Age: 83 Year
  Sex: Male

DRUGS (1)
  1. TREMFYA [Suspect]
     Active Substance: GUSELKUMAB
     Indication: Psoriatic arthropathy
     Dosage: WEEK 0 (15-OCT-2024), WEEK 4, WEEK 8 THEN EVERY 8 WEEKS
     Route: 058
     Dates: start: 20241015

REACTIONS (2)
  - Pneumonia [Unknown]
  - Memory impairment [Unknown]
